FAERS Safety Report 8429908-7 (Version None)
Quarter: 2012Q2

REPORT INFORMATION
  Report Type: 
  Country: None (occurrence: None)
  Receive Date: 20120612
  Receipt Date: 20120601
  Transmission Date: 20120825
  Serious: Yes (Hospitalization, Other)
  Sender: FDA-Public Use
  Company Number: GB-VERTEX PHARMACEUTICALS INC.-000000000000000122

PATIENT
  Sex: Female

DRUGS (12)
  1. RIBAVIRIN [Concomitant]
     Indication: HEPATITIS C
     Dosage: DOSAGE FORM: UNSPECIFIED
     Route: 048
     Dates: start: 20110928
  2. RIBAVIRIN [Concomitant]
     Dates: start: 20110101
  3. LANSOPRAZOLE [Concomitant]
  4. PEGINTERFERON ALFA-2A [Concomitant]
  5. TELAPREVIR [Suspect]
     Indication: HEPATITIS C
     Dosage: DOSAGE FORM: TABLET
     Route: 048
     Dates: start: 20110928, end: 20111218
  6. RIBAVIRIN [Concomitant]
  7. RIBAVIRIN [Concomitant]
  8. LEVOTHYROXINE SODIUM [Concomitant]
  9. EPO [Concomitant]
  10. PEGINTERFERON ALFA-2A [Concomitant]
     Indication: HEPATITIS C
     Dosage: DOSAGE FORM: UNSPECIFIED
     Route: 058
     Dates: start: 20110928
  11. ALENDRONATE SODIUM [Concomitant]
  12. PEGINTERFERON ALFA-2A [Concomitant]

REACTIONS (16)
  - DRY MOUTH [None]
  - RASH PRURITIC [None]
  - LETHARGY [None]
  - THYROID FUNCTION TEST ABNORMAL [None]
  - TONGUE DISORDER [None]
  - FEELING ABNORMAL [None]
  - VOMITING [None]
  - PHARYNGITIS [None]
  - HAEMOGLOBIN DECREASED [None]
  - DEPRESSED MOOD [None]
  - LOWER RESPIRATORY TRACT INFECTION [None]
  - URINARY TRACT INFECTION [None]
  - DEPRESSION [None]
  - FATIGUE [None]
  - INFLUENZA LIKE ILLNESS [None]
  - NAUSEA [None]
